FAERS Safety Report 18926663 (Version 3)
Quarter: 2021Q1

REPORT INFORMATION
  Report Type: Spontaneous
  Country: ES (occurrence: ES)
  Receive Date: 20210223
  Receipt Date: 20210326
  Transmission Date: 20210420
  Serious: Yes (Life-Threatening, Other)
  Sender: FDA-Public Use
  Company Number: ES-JNJFOC-20210209825

PATIENT
  Sex: Female
  Weight: 82 kg

DRUGS (4)
  1. DUROGESIC MATRIX [Suspect]
     Active Substance: FENTANYL
  2. DUROGESIC MATRIX [Suspect]
     Active Substance: FENTANYL
     Indication: PRODUCT USED FOR UNKNOWN INDICATION
     Dosage: 75.00 MCG/HR
     Route: 062
  3. DUROGESIC MATRIX [Suspect]
     Active Substance: FENTANYL
  4. DUROGESIC MATRIX [Suspect]
     Active Substance: FENTANYL

REACTIONS (5)
  - Withdrawal syndrome [Recovered/Resolved]
  - Nervousness [Recovered/Resolved]
  - Pain [Recovered/Resolved]
  - Product adhesion issue [Unknown]
  - Tachycardia [Recovered/Resolved]
